FAERS Safety Report 5159181-7 (Version None)
Quarter: 2006Q4

REPORT INFORMATION
  Report Type: 
  Country: None (occurrence: None)
  Receive Date: 20061120
  Receipt Date: 20061110
  Transmission Date: 20070319
  Serious: No
  Sender: FDA-Public Use
  Company Number: 2006-150232-NL

PATIENT
  Age: 62 Year
  Sex: Female

DRUGS (5)
  1. MIRTAZAPINE [Suspect]
     Indication: CONDUCT DISORDER
     Dosage: 30 MG QD ORAL
     Route: 048
     Dates: start: 20060907, end: 20060923
  2. MIRTAZAPINE [Suspect]
     Indication: DEPRESSION
     Dosage: 30 MG QD ORAL
     Route: 048
     Dates: start: 20060907, end: 20060923
  3. LORAZEPAM [Concomitant]
  4. CLONAZEPAM [Concomitant]
  5. HYOSCINE HBR HYT [Concomitant]

REACTIONS (3)
  - ALANINE AMINOTRANSFERASE INCREASED [None]
  - ASPARTATE AMINOTRANSFERASE INCREASED [None]
  - HEPATOCELLULAR DAMAGE [None]
